FAERS Safety Report 8466614 (Version 3)
Quarter: 2012Q4

REPORT INFORMATION
  Report Type: 
  Country: BE (occurrence: BE)
  Receive Date: 20120319
  Receipt Date: 20121214
  Transmission Date: 20130627
  Serious: Yes (Death, Hospitalization)
  Sender: FDA-Public Use
  Company Number: BE-ALEXION-A201200449

PATIENT
  Age: 74 None
  Sex: Female

DRUGS (11)
  1. SOLIRIS 300MG [Suspect]
     Indication: PAROXYSMAL NOCTURNAL HAEMOGLOBINURIA
     Dosage: 600 mg, qw
     Route: 042
     Dates: start: 201001
  2. SOLIRIS 300MG [Suspect]
     Dosage: 900 mg, q2w
     Route: 042
     Dates: end: 201112
  3. THYMOGLOBULINE [Concomitant]
     Indication: APLASTIC ANAEMIA
     Dosage: 2 mg/kg, qd
     Route: 042
     Dates: start: 20120123
  4. TAVANIC [Concomitant]
     Dosage: 500 mg, 1/2 qd
     Route: 048
  5. DIFLUCAN [Concomitant]
     Dosage: 200 mg, bid
     Route: 048
  6. ACYCLOVIR [Concomitant]
     Dosage: 800 mg, qd
     Route: 048
  7. SOLUMEDROL [Concomitant]
     Dosage: 40 mg, UNK
     Route: 058
  8. PARACETAMOL [Concomitant]
     Dosage: 1 g, UNK
     Route: 042
  9. ZYRTEC [Concomitant]
     Dosage: 10 mg, UNK
     Route: 048
  10. NEUPOGEN [Concomitant]
     Dosage: 300 ?g, qd
     Route: 058
  11. CYCLOSPORINE [Concomitant]
     Dosage: 5 mg/kg, qd
     Route: 048

REACTIONS (5)
  - Bronchopulmonary aspergillosis [Fatal]
  - Cerebral aspergillosis [Fatal]
  - Sepsis [Fatal]
  - Aplastic anaemia [Unknown]
  - Condition aggravated [Unknown]
